FAERS Safety Report 25319031 (Version 1)
Quarter: 2025Q2

REPORT INFORMATION
  Report Type: Spontaneous
  Country: US (occurrence: None)
  Receive Date: 20250515
  Receipt Date: 20250515
  Transmission Date: 20250717
  Serious: Yes (Other)
  Sender: FDA-CTU
  Company Number: None

PATIENT
  Age: 44 Year
  Sex: Female
  Weight: 88.45 kg

DRUGS (3)
  1. LYBALVI [Suspect]
     Active Substance: OLANZAPINE\SAMIDORPHAN L-MALATE
     Indication: Bipolar disorder
     Route: 048
     Dates: start: 20250508, end: 20250508
  2. LITHIUM [Concomitant]
     Active Substance: LITHIUM
  3. DEPAKOTE [Suspect]
     Active Substance: DIVALPROEX SODIUM

REACTIONS (5)
  - Sensory disturbance [None]
  - Dizziness [None]
  - Panic disorder [None]
  - Hallucination, visual [None]
  - Weight increased [None]

NARRATIVE: CASE EVENT DATE: 20250509
